FAERS Safety Report 5960370-X (Version None)
Quarter: 2008Q4

REPORT INFORMATION
  Report Type: 
  Country: None (occurrence: None)
  Receive Date: 20081120
  Receipt Date: 20081112
  Transmission Date: 20090506
  Serious: Yes (Hospitalization)
  Sender: FDA-Public Use
  Company Number: US-BAXTER-2008BH012425

PATIENT
  Age: 59 Year
  Sex: Female

DRUGS (4)
  1. DIANEAL [Suspect]
     Indication: PERITONEAL DIALYSIS
     Route: 033
  2. INSULIN [Concomitant]
     Indication: TYPE 1 DIABETES MELLITUS
     Route: 065
  3. GLIPIZIDE [Concomitant]
     Indication: DRUG USE FOR UNKNOWN INDICATION
     Route: 065
  4. ACTOS [Concomitant]
     Indication: DRUG USE FOR UNKNOWN INDICATION
     Route: 065

REACTIONS (4)
  - ASTHENIA [None]
  - DEVICE MALFUNCTION [None]
  - DIABETES MELLITUS INADEQUATE CONTROL [None]
  - ELECTROLYTE IMBALANCE [None]
